FAERS Safety Report 21475087 (Version 7)
Quarter: 2024Q1

REPORT INFORMATION
  Report Type: Report from Study
  Country: US (occurrence: US)
  Receive Date: 20221019
  Receipt Date: 20240215
  Transmission Date: 20240410
  Serious: Yes (Hospitalization)
  Sender: FDA-Public Use
  Company Number: US-ACADIA PHARMACEUTICALS INC.-ACA-2022-PIM-003275

PATIENT
  Age: 86 Year
  Sex: Male

DRUGS (6)
  1. NUPLAZID [Suspect]
     Active Substance: PIMAVANSERIN TARTRATE
     Indication: Parkinson^s disease psychosis
     Dosage: 34 MILLIGRAM, QD
     Route: 048
     Dates: start: 20220712
  2. NUPLAZID [Suspect]
     Active Substance: PIMAVANSERIN TARTRATE
     Indication: Parkinson^s disease psychosis
     Dosage: UNK
     Route: 065
  3. AMANTADINE [Suspect]
     Active Substance: AMANTADINE
  4. CRESTOR [Suspect]
     Active Substance: ROSUVASTATIN CALCIUM
     Dosage: UNK
     Dates: start: 20220909, end: 20220918
  5. MEMANTINE [Concomitant]
     Active Substance: MEMANTINE
  6. ROPINIROLE [Concomitant]
     Active Substance: ROPINIROLE

REACTIONS (22)
  - Urinary tract infection [Recovered/Resolved]
  - Fall [Recovered/Resolved]
  - Hallucination [Recovered/Resolved]
  - Muscle spasms [Unknown]
  - Muscle twitching [Unknown]
  - Weight increased [Unknown]
  - Blood potassium increased [Unknown]
  - Oedema [Unknown]
  - Myalgia [Unknown]
  - Asthenia [Unknown]
  - Head injury [Recovered/Resolved]
  - COVID-19 [Not Recovered/Not Resolved]
  - Bone graft [Unknown]
  - Dental caries [Unknown]
  - Tooth extraction [Unknown]
  - Muscle spasms [Not Recovered/Not Resolved]
  - Confusional state [Unknown]
  - Hallucination, visual [Recovered/Resolved]
  - Fall [Recovered/Resolved]
  - Hallucination [Unknown]
  - Fall [Unknown]
  - Hallucination [Unknown]

NARRATIVE: CASE EVENT DATE: 20230118
